FAERS Safety Report 8024532-2 (Version None)
Quarter: 2012Q1

REPORT INFORMATION
  Report Type: 
  Country: None (occurrence: None)
  Receive Date: 20120105
  Receipt Date: 20120104
  Transmission Date: 20120608
  Serious: Yes (Death, Other)
  Sender: FDA-Public Use
  Company Number: PHHY2011DE66185

PATIENT
  Sex: Female
  Weight: 49 kg

DRUGS (2)
  1. CITALOPRAM [Concomitant]
     Dosage: 10 MG
     Route: 048
     Dates: start: 20091001
  2. ZOMETA [Suspect]
     Indication: BONE DISORDER
     Dosage: 4 MG
     Route: 042
     Dates: start: 20100309

REACTIONS (7)
  - METASTASES TO BONE [None]
  - NEOPLASM PROGRESSION [None]
  - GENERAL PHYSICAL HEALTH DETERIORATION [None]
  - SKIN NEOPLASM BLEEDING [None]
  - CACHEXIA [None]
  - NEOPLASM MALIGNANT [None]
  - VOMITING [None]
